FAERS Safety Report 8592448-9 (Version None)
Quarter: 2012Q3

REPORT INFORMATION
  Report Type: 
  Country: None (occurrence: None)
  Receive Date: 20120814
  Receipt Date: 20120803
  Transmission Date: 20120928
  Serious: Yes (Hospitalization, Other)
  Sender: FDA-Public Use
  Company Number: US-009507513-1202USA03511

PATIENT

DRUGS (17)
  1. HALCION [Concomitant]
     Indication: INSOMNIA
     Dosage: 0.25 MG, UNK
  2. LEVOXYL [Concomitant]
  3. PREVACID [Concomitant]
     Indication: GASTROOESOPHAGEAL REFLUX DISEASE
     Dosage: 30 MG, UNK
     Route: 048
  4. CLARITIN [Concomitant]
  5. SYNTHROID [Concomitant]
     Indication: HYPOTHYROIDISM
     Dosage: 175 MICROGRAM, QD
     Route: 048
  6. LIPITOR [Concomitant]
     Indication: HYPERCHOLESTEROLAEMIA
     Dosage: 60 MG, UNK
     Route: 048
  7. XANAX [Concomitant]
     Indication: INSOMNIA
     Dosage: 0.25 MG, UNK
  8. TRAZODONE HCL [Concomitant]
     Indication: INSOMNIA
     Dosage: 25 MG, UNK
     Route: 048
     Dates: start: 20050312
  9. FOSAMAX [Suspect]
     Indication: OSTEOPOROSIS
     Dosage: 70 MG, UNK
     Route: 048
     Dates: start: 20030101, end: 20080601
  10. ALENDRONATE SODIUM [Suspect]
     Indication: OSTEOPOROSIS
     Dosage: 70 MG, UNK
     Route: 048
     Dates: start: 20080601, end: 20110701
  11. SYNTHROID [Concomitant]
     Dosage: 200 MICROGRAM, QD
     Dates: start: 20030903
  12. AMBIEN [Concomitant]
     Indication: INSOMNIA
     Dosage: UNK
     Dates: start: 20031231
  13. LEVOTHYROXINE SODIUM [Concomitant]
  14. SYNTHROID [Concomitant]
     Dosage: 137 UNK, UNK
  15. SYNTHROID [Concomitant]
     Dosage: 75 UNK, UNK
     Route: 048
  16. LIPITOR [Concomitant]
     Dosage: 80 UNK, UNK
     Route: 048
  17. ALBUTEROL [Concomitant]
     Indication: SEASONAL ALLERGY

REACTIONS (22)
  - FEMUR FRACTURE [None]
  - VASCULAR CALCIFICATION [None]
  - HERPES ZOSTER [None]
  - ROAD TRAFFIC ACCIDENT [None]
  - DRUG INEFFECTIVE [None]
  - LUNG NEOPLASM [None]
  - DYSPEPSIA [None]
  - CARDIAC MURMUR [None]
  - OSTEOARTHRITIS [None]
  - DRY SKIN [None]
  - CATARACT [None]
  - DIVERTICULUM [None]
  - ANAEMIA POSTOPERATIVE [None]
  - INDURATION [None]
  - OSTEOPENIA [None]
  - FEELING JITTERY [None]
  - HOT FLUSH [None]
  - NECK PAIN [None]
  - LOW TURNOVER OSTEOPATHY [None]
  - OVERDOSE [None]
  - MEMORY IMPAIRMENT [None]
  - FATIGUE [None]
